FAERS Safety Report 25335545 (Version 1)
Quarter: 2025Q2

REPORT INFORMATION
  Report Type: Spontaneous
  Country: US (occurrence: None)
  Receive Date: 20250519
  Receipt Date: 20250519
  Transmission Date: 20250716
  Serious: Yes (Hospitalization)
  Sender: FDA-CTU
  Company Number: None

PATIENT
  Age: 66 Year
  Sex: Female

DRUGS (1)
  1. AUSTEDO [Suspect]
     Active Substance: DEUTETRABENAZINE
     Indication: Tardive dyskinesia
     Dosage: 12 MG DAILY ORAL
     Route: 048
     Dates: start: 20240516

REACTIONS (3)
  - Urinary tract infection [None]
  - Diverticulitis [None]
  - Diarrhoea [None]

NARRATIVE: CASE EVENT DATE: 20250514
